FAERS Safety Report 23618286 (Version 1)
Quarter: 2024Q1

REPORT INFORMATION
  Report Type: Spontaneous
  Country: US (occurrence: US)
  Receive Date: 20240311
  Receipt Date: 20240311
  Transmission Date: 20240409
  Serious: No
  Sender: FDA-Public Use
  Company Number: US-SA-SAC20240306000917

PATIENT
  Age: 26 Year
  Sex: Male

DRUGS (6)
  1. ALPROLIX [Suspect]
     Active Substance: EFTRENONACOG ALFA
     Indication: Factor IX deficiency
     Dosage: 5600 U (5320- 5880) EVERY 5-7 DAYS FOR PREVENTION OF BLEEDING
     Route: 041
     Dates: start: 202311
  2. ALPROLIX [Suspect]
     Active Substance: EFTRENONACOG ALFA
     Indication: Factor IX deficiency
     Dosage: 5600 U (5320- 5880) EVERY 5-7 DAYS FOR PREVENTION OF BLEEDING
     Route: 041
     Dates: start: 202311
  3. ALPROLIX [Suspect]
     Active Substance: EFTRENONACOG ALFA
     Indication: Haemorrhage prophylaxis
     Dosage: 5600 U (5320- 5880) EVERY 24 HOURS AS NEEDED FOR MINOR BLEEDING
     Route: 041
     Dates: start: 202311
  4. ALPROLIX [Suspect]
     Active Substance: EFTRENONACOG ALFA
     Indication: Haemorrhage prophylaxis
     Dosage: 5600 U (5320- 5880) EVERY 24 HOURS AS NEEDED FOR MINOR BLEEDING
     Route: 041
     Dates: start: 202311
  5. ALPROLIX [Suspect]
     Active Substance: EFTRENONACOG ALFA
     Indication: Haemorrhage
  6. ALPROLIX [Suspect]
     Active Substance: EFTRENONACOG ALFA
     Indication: Haemorrhage

REACTIONS (1)
  - Urinary tract infection [Unknown]

NARRATIVE: CASE EVENT DATE: 20240210
